FAERS Safety Report 10861104 (Version 1)
Quarter: 2015Q1

REPORT INFORMATION
  Report Type: Spontaneous
  Country: US (occurrence: None)
  Receive Date: 20150218
  Receipt Date: 20150218
  Transmission Date: 20150721
  Serious: Yes (Hospitalization)
  Sender: FDA-Public Use
  Company Number: None

PATIENT
  Age: 66 Year
  Sex: Female
  Weight: 79 kg

DRUGS (2)
  1. FOLFIRI [Concomitant]
     Active Substance: FLUOROURACIL\IRINOTECAN\LEUCOVORIN
  2. REGORAFENIB [Suspect]
     Active Substance: REGORAFENIB
     Indication: COLON CANCER METASTATIC
     Dosage: 4 TABLETS DAYS 4-10 + 18-24
     Route: 048
     Dates: start: 20141025, end: 20141028

REACTIONS (4)
  - Enterocolitis infectious [None]
  - Dehydration [None]
  - Stomatitis [None]
  - Urinary tract infection [None]

NARRATIVE: CASE EVENT DATE: 20141106
